FAERS Safety Report 9113041 (Version 1)
Quarter: 2013Q1

REPORT INFORMATION
  Report Type: Spontaneous
  Country: US (occurrence: US)
  Receive Date: 20130211
  Receipt Date: 20130211
  Transmission Date: 20140127
  Serious: No
  Sender: FDA-Public Use
  Company Number: US-PFIZER INC-2013055225

PATIENT
  Sex: Female

DRUGS (2)
  1. LYRICA [Suspect]
     Indication: DIABETIC NEUROPATHY
     Dosage: 50 MG, 1X/DAY (50MG CAPSULE)
     Route: 048
     Dates: start: 201210, end: 201302
  2. LYRICA [Suspect]
     Dosage: 100 MG, 1X/DAY (2 CAPSULES OF 50MG)
     Route: 048
     Dates: start: 201302

REACTIONS (1)
  - Neuralgia [Unknown]
